FAERS Safety Report 6261283-9 (Version None)
Quarter: 2009Q3

REPORT INFORMATION
  Report Type: 
  Country: None (occurrence: None)
  Receive Date: 20090709
  Receipt Date: 20090323
  Transmission Date: 20100115
  Serious: No
  Sender: FDA-Public Use
  Company Number: US-KINGPHARMUSA00001-K200900334

PATIENT
  Sex: Female

DRUGS (1)
  1. LEVOXYL [Suspect]
     Dosage: 50 MCG, UNK
     Dates: start: 19980101, end: 20090301

REACTIONS (3)
  - FOOD INTOLERANCE [None]
  - IMMUNE SYSTEM DISORDER [None]
  - PSYCHOMOTOR HYPERACTIVITY [None]
